FAERS Safety Report 7759747-1 (Version None)
Quarter: 2011Q3

REPORT INFORMATION
  Report Type: 
  Country: None (occurrence: None)
  Receive Date: 20110919
  Receipt Date: 20110908
  Transmission Date: 20111222
  Serious: Yes (Hospitalization)
  Sender: FDA-Public Use
  Company Number: GR-ASTRAZENECA-2011SE53703

PATIENT
  Age: 47 Year
  Sex: Female

DRUGS (6)
  1. TRASTUZUMAB [Concomitant]
     Indication: CHEMOTHERAPY
     Dates: start: 20080501, end: 20080901
  2. DOCETAXEL [Concomitant]
     Indication: CHEMOTHERAPY
     Dates: start: 20080501, end: 20080901
  3. CARBOPLATIN [Concomitant]
     Indication: CHEMOTHERAPY
     Dates: start: 20080501, end: 20080901
  4. TAMOXIFEN CITRATE [Concomitant]
     Dosage: DAILY
  5. TRASTUZUMAB [Concomitant]
     Dosage: EVERY 3 WEEKS
     Dates: start: 20081001
  6. GOSERELIN [Suspect]
     Dosage: 10.74 MG EVERY TRIMESTER
     Route: 030

REACTIONS (1)
  - RECALL PHENOMENON [None]
